FAERS Safety Report 23721568 (Version 2)
Quarter: 2024Q2

REPORT INFORMATION
  Report Type: Spontaneous
  Country: JP (occurrence: JP)
  Receive Date: 20240409
  Receipt Date: 20240430
  Transmission Date: 20240715
  Serious: Yes (Other)
  Sender: FDA-Public Use
  Company Number: JP-PHATHOM PHARMACEUTICALS INC.-2024PHT00180

PATIENT
  Age: 6 Decade
  Sex: Female

DRUGS (2)
  1. VONOPRAZAN FUMARATE [Suspect]
     Active Substance: VONOPRAZAN FUMARATE
     Indication: Gastrooesophageal reflux disease
     Dosage: 20 MG, 1X/DAY
     Route: 048
  2. VONOPRAZAN FUMARATE [Suspect]
     Active Substance: VONOPRAZAN FUMARATE
     Indication: Gastrooesophageal reflux disease
     Dosage: UNK
     Route: 048

REACTIONS (5)
  - Duodenal ulcer [Recovered/Resolved]
  - Hypergastrinaemia [Unknown]
  - Product taste abnormal [Unknown]
  - Feeling abnormal [Unknown]
  - Inappropriate schedule of product administration [Recovered/Resolved]
